FAERS Safety Report 8558189-9 (Version None)
Quarter: 2012Q3

REPORT INFORMATION
  Report Type: 
  Country: None (occurrence: None)
  Receive Date: 20120801
  Receipt Date: 20120723
  Transmission Date: 20120928
  Serious: Yes (Other)
  Sender: FDA-Public Use
  Company Number: DE-BAYER-2012-073764

PATIENT
  Sex: Male
  Weight: 68 kg

DRUGS (5)
  1. NEXAVAR [Suspect]
     Dosage: 200 MG, BID
     Dates: start: 20110218
  2. NEXAVAR [Suspect]
     Dosage: 400 MG DAILY
     Dates: start: 20110420, end: 20120310
  3. NEXAVAR [Suspect]
     Indication: HEPATIC NEOPLASM MALIGNANT
     Dosage: 200 MG, QD
     Dates: start: 20110209
  4. NEXAVAR [Suspect]
     Dosage: 600 MG/D (2-0-1)
     Dates: start: 20110302
  5. NEXAVAR [Suspect]
     Dosage: 800 MG DAILY
     Dates: start: 20110323

REACTIONS (3)
  - NEOPLASM SWELLING [None]
  - METASTASES TO BONE [None]
  - METASTATIC PAIN [None]
